FAERS Safety Report 10012518 (Version 1)
Quarter: 2014Q1

REPORT INFORMATION
  Report Type: Spontaneous
  Country: US (occurrence: US)
  Receive Date: 20140314
  Receipt Date: 20140314
  Transmission Date: 20141002
  Serious: Yes (Hospitalization)
  Sender: FDA-Public Use
  Company Number: US-UPSHER-SMITH LABORATORIES, INC.-14000541

PATIENT
  Age: 86 Year
  Sex: Female

DRUGS (7)
  1. KLOR-CON TABLETS [Suspect]
     Indication: BLOOD POTASSIUM DECREASED
     Dosage: 20 MEQ, QD
     Route: 048
     Dates: start: 20131014, end: 201311
  2. METOPROLOL [Concomitant]
     Indication: HYPERTENSION
     Dosage: UNK
  3. MESALAMINE [Concomitant]
     Indication: COLITIS
     Dosage: UNK
  4. SYNTHROID [Concomitant]
     Indication: HYPOTHYROIDISM
     Dosage: UNK
  5. ADVAIR [Concomitant]
     Dosage: UNK, BID
  6. SPIRIVA [Concomitant]
     Dosage: UNK
  7. LASIX [Concomitant]
     Dosage: UNK

REACTIONS (3)
  - Large intestinal obstruction [Recovered/Resolved]
  - Foreign body [Recovered/Resolved]
  - Medication residue present [Recovered/Resolved]
